FAERS Safety Report 11558930 (Version 1)
Quarter: 2015Q3

REPORT INFORMATION
  Report Type: Spontaneous
  Country: US (occurrence: US)
  Receive Date: 20150928
  Receipt Date: 20150928
  Transmission Date: 20151125
  Serious: No
  Sender: FDA-Public Use
  Company Number: PHEH2012US026159

PATIENT
  Sex: Female

DRUGS (1)
  1. HYDROCHLOROTHIAZIDE,VALSARTAN [Suspect]
     Active Substance: HYDROCHLOROTHIAZIDE\VALSARTAN
     Indication: PRODUCT USED FOR UNKNOWN INDICATION
     Dosage: 1 DF, (160 MG VALSARTAN AND 12.5 MG HYDROCHOLOROTHIAZIDE)
     Route: 065

REACTIONS (4)
  - Hyperhidrosis [Unknown]
  - Somnolence [Unknown]
  - Malaise [Unknown]
  - Nasopharyngitis [Unknown]
